FAERS Safety Report 6614060-0 (Version None)
Quarter: 2010Q1

REPORT INFORMATION
  Report Type: 
  Country: None (occurrence: None)
  Receive Date: 20100225
  Receipt Date: 20090115
  Transmission Date: 20100710
  Serious: Yes (Other)
  Sender: FDA-Public Use
  Company Number: 571726

PATIENT
  Age: 17 Year
  Sex: Male
  Weight: 77.6 kg

DRUGS (1)
  1. ACCUTANE [Suspect]
     Indication: ACNE
     Dosage: 40 MG 1 PER DAY
     Dates: start: 19980418, end: 19981113

REACTIONS (8)
  - ABSCESS [None]
  - CLOSTRIDIAL INFECTION [None]
  - COLITIS [None]
  - DEPRESSION [None]
  - EPISTAXIS [None]
  - INFLAMMATORY BOWEL DISEASE [None]
  - PROCTITIS [None]
  - SUBCUTANEOUS ABSCESS [None]
